FAERS Safety Report 8884893 (Version 2)
Quarter: 2012Q4

REPORT INFORMATION
  Report Type: 
  Country: US (occurrence: US)
  Receive Date: 20121102
  Receipt Date: 20121213
  Transmission Date: 20130627
  Serious: Yes (Hospitalization)
  Sender: FDA-Public Use
  Company Number: US-PFIZER INC-2012273633

PATIENT
  Age: 52 Year
  Sex: Female
  Weight: 63.49 kg

DRUGS (1)
  1. EFFEXOR XR [Suspect]
     Indication: DEPRESSION
     Dosage: 150 mg, 1x/day
     Dates: end: 2012

REACTIONS (2)
  - Myocardial infarction [Recovered/Resolved]
  - Stress [Unknown]
